FAERS Safety Report 7260871-0 (Version None)
Quarter: 2011Q1

REPORT INFORMATION
  Report Type: 
  Country: None (occurrence: None)
  Receive Date: 20110130
  Receipt Date: 20101227
  Transmission Date: 20110831
  Serious: No
  Sender: FDA-Public Use
  Company Number: US-ABBOTT-10P-163-0693645-00

PATIENT
  Sex: Male
  Weight: 154.36 kg

DRUGS (2)
  1. HUMIRA [Suspect]
     Indication: RHEUMATOID ARTHRITIS
     Dates: start: 20101210
  2. INSULIN NOVOLOG 710/30 [Concomitant]
     Indication: DIABETES MELLITUS

REACTIONS (2)
  - SOMNOLENCE [None]
  - MOOD ALTERED [None]
